FAERS Safety Report 16625011 (Version 1)
Quarter: 2019Q3

REPORT INFORMATION
  Report Type: Other
  Country: CA (occurrence: CA)
  Receive Date: 20190724
  Receipt Date: 20190724
  Transmission Date: 20191004
  Serious: Yes (Other)
  Sender: FDA-Public Use
  Company Number: CA-PFIZER INC-2019310469

PATIENT
  Age: 58 Year
  Sex: Male

DRUGS (4)
  1. MEDROXYPROGESTERONE ACETATE. [Suspect]
     Active Substance: MEDROXYPROGESTERONE ACETATE
     Dosage: 400 MG, UNK (EVERY 2 WEEKS)
     Route: 030
  2. MEDROXYPROGESTERONE ACETATE. [Suspect]
     Active Substance: MEDROXYPROGESTERONE ACETATE
     Dosage: 200 MG, UNK  (EVERY 2 WEEKS)
     Route: 030
  3. ZUCLOPENTHIXOL [Concomitant]
     Active Substance: ZUCLOPENTHIXOL
     Dosage: UNK
  4. MEDROXYPROGESTERONE ACETATE. [Suspect]
     Active Substance: MEDROXYPROGESTERONE ACETATE
     Dosage: 200 MG, WEEKLY
     Route: 030

REACTIONS (3)
  - Fluid retention [Recovered/Resolved]
  - Incorrect route of product administration [Unknown]
  - Abdominal distension [Recovered/Resolved]
